FAERS Safety Report 5721501-X (Version None)
Quarter: 2008Q2

REPORT INFORMATION
  Report Type: 
  Country: None (occurrence: None)
  Receive Date: 20080428
  Receipt Date: 20080428
  Transmission Date: 20081010
  Serious: Yes (Life-Threatening)
  Sender: FDA-Public Use
  Company Number: None

PATIENT
  Sex: Male
  Weight: 77.1115 kg

DRUGS (2)
  1. AMBIEN [Suspect]
     Indication: INSOMNIA
     Dosage: 2 TABS -20 MG- EACH EVENING PRN PO
     Route: 048
     Dates: start: 20071201, end: 20080128
  2. SUBOXONE [Suspect]
     Indication: DRUG DEPENDENCE
     Dosage: 2 TABS -16 MG- EACH MORNING SL
     Route: 060
     Dates: start: 20071201, end: 20080128

REACTIONS (9)
  - ABNORMAL SLEEP-RELATED EVENT [None]
  - AMNESIA [None]
  - GUN SHOT WOUND [None]
  - INSOMNIA [None]
  - JOINT INJURY [None]
  - LEGAL PROBLEM [None]
  - PAIN [None]
  - SELF INJURIOUS BEHAVIOUR [None]
  - TREATMENT NONCOMPLIANCE [None]
